FAERS Safety Report 10062630 (Version 1)
Quarter: 2014Q1

REPORT INFORMATION
  Report Type: Spontaneous
  Country: US (occurrence: None)
  Receive Date: 20140313
  Receipt Date: 20140313
  Transmission Date: 20141002
  Serious: No
  Sender: FDA-Public Use
  Company Number: 1000051167

PATIENT
  Sex: Male

DRUGS (1)
  1. DALIRESP [Suspect]
     Dosage: 500 MCG, (500 MCG, 1 IN 1D )
     Route: 048

REACTIONS (1)
  - Drug ineffective [None]
